FAERS Safety Report 4842629-2 (Version None)
Quarter: 2005Q4

REPORT INFORMATION
  Report Type: 
  Country: None (occurrence: None)
  Receive Date: 20051201
  Receipt Date: 20051128
  Transmission Date: 20060501
  Serious: Yes (Other)
  Sender: FDA-Public Use
  Company Number: NL-GLAXOSMITHKLINE-B0402136A

PATIENT
  Age: 7 Year
  Sex: Male

DRUGS (2)
  1. SALBUTAMOL SULPHATE [Suspect]
     Route: 055
     Dates: start: 20010101
  2. FLUTICASONE PROPIONATE [Suspect]
     Route: 055
     Dates: start: 20010101

REACTIONS (1)
  - SYNCOPE [None]
